FAERS Safety Report 14704009 (Version 1)
Quarter: 2018Q2

REPORT INFORMATION
  Report Type: Spontaneous
  Country: JP (occurrence: JP)
  Receive Date: 20180402
  Receipt Date: 20180402
  Transmission Date: 20180711
  Serious: Yes (Death, Other)
  Sender: FDA-Public Use
  Company Number: JP-CELGENEUS-JPN-20180105161

PATIENT
  Age: 70 Year
  Sex: Male

DRUGS (3)
  1. LENADEX [Suspect]
     Active Substance: DEXAMETHASONE ACETATE
     Dosage: UNKNOWN
     Route: 048
     Dates: start: 2018, end: 2018
  2. POMALYST [Suspect]
     Active Substance: POMALIDOMIDE
     Indication: PLASMA CELL MYELOMA
     Dosage: 4 MILLIGRAM
     Route: 048
     Dates: start: 20171207, end: 20180111
  3. LENADEX [Suspect]
     Active Substance: DEXAMETHASONE ACETATE
     Indication: PLASMA CELL MYELOMA
     Dosage: 4 MILLIGRAM
     Route: 048
     Dates: start: 20171207, end: 20180111

REACTIONS (2)
  - Blood creatinine increased [Not Recovered/Not Resolved]
  - Plasma cell myeloma [Fatal]

NARRATIVE: CASE EVENT DATE: 20180112
